FAERS Safety Report 18333603 (Version 1)
Quarter: 2020Q4

REPORT INFORMATION
  Report Type: Other
  Country: CN (occurrence: CN)
  Receive Date: 20201001
  Receipt Date: 20201001
  Transmission Date: 20210113
  Serious: Yes (Other)
  Sender: FDA-Public Use
  Company Number: CN-ROCHE-2683592

PATIENT
  Sex: Female

DRUGS (4)
  1. DEXAMETHASONE. [Concomitant]
     Active Substance: DEXAMETHASONE
     Route: 048
  2. BEVACIZUMAB. [Suspect]
     Active Substance: BEVACIZUMAB
     Indication: CERVIX CARCINOMA
     Route: 041
  3. FOLIC ACID. [Concomitant]
     Active Substance: FOLIC ACID
     Route: 048
  4. PEMETREXED DISODIUM [Suspect]
     Active Substance: PEMETREXED DISODIUM
     Indication: CERVIX CARCINOMA
     Route: 041

REACTIONS (17)
  - Neurotoxicity [Unknown]
  - Neutrophil count decreased [Unknown]
  - Haemorrhage [Unknown]
  - Nausea [Unknown]
  - Gastrointestinal disorder [Unknown]
  - Aspartate aminotransferase increased [Unknown]
  - Pain [Unknown]
  - Anaemia [Unknown]
  - Cardiovascular disorder [Unknown]
  - Hypersensitivity [Unknown]
  - Vomiting [Unknown]
  - Platelet count decreased [Unknown]
  - White blood cell count decreased [Unknown]
  - Embolism [Unknown]
  - Hypertension [Unknown]
  - Skin disorder [Unknown]
  - Blood alkaline phosphatase abnormal [Unknown]
